FAERS Safety Report 9212180 (Version 2)
Quarter: 2013Q2

REPORT INFORMATION
  Report Type: Spontaneous
  Country: US (occurrence: US)
  Receive Date: 20130404
  Receipt Date: 20130604
  Transmission Date: 20140414
  Serious: No
  Sender: FDA-Public Use
  Company Number: US-AMGEN-USASP2013022066

PATIENT
  Age: 81 Year
  Sex: Male

DRUGS (3)
  1. ENBREL [Suspect]
     Indication: PSORIASIS
     Dosage: UNK
     Dates: start: 20030529
  2. ENBREL [Suspect]
     Indication: ARTHRITIS
  3. METHOTREXATE [Concomitant]
     Dosage: 15 MG, QWK

REACTIONS (1)
  - Psoriasis [Not Recovered/Not Resolved]
